FAERS Safety Report 15688810 (Version 1)
Quarter: 2018Q4

REPORT INFORMATION
  Report Type: Spontaneous
  Country: US (occurrence: US)
  Receive Date: 20181205
  Receipt Date: 20181205
  Transmission Date: 20190205
  Serious: Yes (Other)
  Sender: FDA-Public Use
  Company Number: US-QILU PHARMACEUTICAL CO.LTD.-QLU-000828-2018

PATIENT
  Age: 70 Year
  Sex: Female

DRUGS (2)
  1. CEFEPIME HYDROCHLORIDE. [Suspect]
     Active Substance: CEFEPIME HYDROCHLORIDE
     Indication: MENINGITIS
     Dosage: 2 G, TID
     Route: 042
  2. VANCOMYCIN [Suspect]
     Active Substance: VANCOMYCIN
     Indication: MENINGITIS
     Dosage: UNK
     Route: 042

REACTIONS (4)
  - Coma [Recovered/Resolved]
  - Opsoclonus myoclonus [Recovered/Resolved]
  - Toxic encephalopathy [Recovered/Resolved]
  - Mental impairment [Recovered/Resolved]
